FAERS Safety Report 7152633-X (Version None)
Quarter: 2010Q4

REPORT INFORMATION
  Report Type: 
  Country: None (occurrence: None)
  Receive Date: 20101213
  Receipt Date: 20101208
  Transmission Date: 20110411
  Serious: Yes (Death)
  Sender: FDA-Public Use
  Company Number: DE-AMGEN-DEUSP2010008261

PATIENT

DRUGS (5)
  1. NPLATE [Suspect]
     Indication: IDIOPATHIC THROMBOCYTOPENIC PURPURA
     Dosage: 6 A?G/KG, QWK
     Route: 058
     Dates: start: 20090716, end: 20101101
  2. VIGANTOLETTEN [Concomitant]
     Indication: HYPOVITAMINOSIS
     Dosage: 1000 MG, QD
     Route: 048
  3. PANTOZOL                           /01263202/ [Concomitant]
     Indication: GASTRITIS
     Dosage: 40
     Route: 048
  4. NEBIVOLOL HCL [Concomitant]
     Indication: HYPERTONIA
     Dosage: 5 MG, QD
     Route: 048
  5. NITRENDIPIN [Concomitant]
     Indication: HYPERTONIA
     Dosage: 10 MG, BID
     Route: 048

REACTIONS (1)
  - COMPLETED SUICIDE [None]
